FAERS Safety Report 8270269-4 (Version None)
Quarter: 2012Q2

REPORT INFORMATION
  Report Type: 
  Country: None (occurrence: None)
  Receive Date: 20120410
  Receipt Date: 20120405
  Transmission Date: 20120825
  Serious: No
  Sender: FDA-Public Use
  Company Number: US-PFIZER INC-2012058792

PATIENT
  Sex: Male
  Weight: 95.238 kg

DRUGS (3)
  1. TOPROL-XL [Concomitant]
     Indication: HYPERTENSION
     Dosage: UNK
  2. LYRICA [Suspect]
     Dosage: UNKNOWN DOSE AND FREQUENCY
     Route: 048
     Dates: start: 20111201
  3. LYRICA [Suspect]
     Indication: PROCEDURAL PAIN
     Dosage: 100 MG, 2X/DAY
     Route: 048
     Dates: start: 20100901

REACTIONS (2)
  - SKIN BURNING SENSATION [None]
  - RASH [None]
